FAERS Safety Report 7225700-X (Version None)
Quarter: 2011Q1

REPORT INFORMATION
  Report Type: 
  Country: None (occurrence: None)
  Receive Date: 20110113
  Receipt Date: 20110111
  Transmission Date: 20110831
  Serious: Yes (Death, Hospitalization, Other)
  Sender: FDA-Public Use
  Company Number: IN-GENZYME-CERZ-1001758

PATIENT
  Age: 7 Year
  Sex: Male
  Weight: 10.5 kg

DRUGS (1)
  1. CEREZYME [Suspect]
     Indication: GAUCHER'S DISEASE
     Dosage: 600 MG, Q2W
     Route: 042

REACTIONS (7)
  - VOMITING [None]
  - HAEMORRHAGE [None]
  - DISEASE PROGRESSION [None]
  - DRUG INEFFECTIVE [None]
  - DYSPNOEA [None]
  - PYREXIA [None]
  - DIARRHOEA [None]
